FAERS Safety Report 26192003 (Version 1)
Quarter: 2025Q4

REPORT INFORMATION
  Report Type: Spontaneous
  Country: US (occurrence: US)
  Receive Date: 20251223
  Receipt Date: 20251223
  Transmission Date: 20260119
  Serious: Yes (Hospitalization)
  Sender: AMGEN
  Company Number: US-AMGEN-USASP2025249729

PATIENT
  Age: 67 Year
  Sex: Male

DRUGS (11)
  1. PREDNISONE [Suspect]
     Active Substance: PREDNISONE
     Indication: Chronic obstructive pulmonary disease
     Dosage: UNK (TAPER)
     Route: 065
  2. OSELTAMIVIR [Concomitant]
     Active Substance: OSELTAMIVIR
     Indication: Influenza B virus test positive
  3. FLUTICASONE [Concomitant]
     Active Substance: FLUTICASONE
     Indication: Chronic obstructive pulmonary disease
  4. FLUTICASONE [Concomitant]
     Active Substance: FLUTICASONE
  5. UMECLIDINIUM [Concomitant]
     Active Substance: UMECLIDINIUM
     Indication: Chronic obstructive pulmonary disease
  6. UMECLIDINIUM [Concomitant]
     Active Substance: UMECLIDINIUM
  7. VILANTEROL [Concomitant]
     Active Substance: VILANTEROL
     Indication: Chronic obstructive pulmonary disease
  8. VILANTEROL [Concomitant]
     Active Substance: VILANTEROL
  9. ALBUTEROL\IPRATROPIUM [Concomitant]
     Active Substance: ALBUTEROL\IPRATROPIUM
     Indication: Chronic obstructive pulmonary disease
  10. AMOXICILLIN\CLAVULANIC ACID [Concomitant]
     Active Substance: AMOXICILLIN\CLAVULANIC ACID
     Indication: Chronic obstructive pulmonary disease
  11. BENZONATATE [Concomitant]
     Active Substance: BENZONATATE
     Indication: Chronic obstructive pulmonary disease

REACTIONS (3)
  - Fall [Unknown]
  - Compression fracture [Unknown]
  - Loss of consciousness [Recovering/Resolving]
